FAERS Safety Report 25641630 (Version 1)
Quarter: 2025Q3

REPORT INFORMATION
  Report Type: Spontaneous
  Country: EU (occurrence: EU)
  Receive Date: 20250804
  Receipt Date: 20250804
  Transmission Date: 20251020
  Serious: Yes (Hospitalization, Other)
  Sender: NOVARTIS
  Company Number: EU-SZ09-PHHY2014FR155974

PATIENT
  Age: 59 Year
  Sex: Male

DRUGS (11)
  1. MYCOPHENOLATE MOFETIL [Suspect]
     Active Substance: MYCOPHENOLATE MOFETIL
     Indication: Immunosuppression
     Dosage: 2 G, QD
     Route: 065
  2. TACROLIMUS [Interacting]
     Active Substance: TACROLIMUS
     Indication: Immunosuppression
     Dosage: 3.5 MG, QD
     Route: 065
  3. TACROLIMUS [Interacting]
     Active Substance: TACROLIMUS
     Indication: Renal transplant
     Dosage: 0.5 MG, QD
     Route: 065
  4. TACROLIMUS [Interacting]
     Active Substance: TACROLIMUS
     Indication: Immunosuppressant drug therapy
  5. PREDNISONE [Suspect]
     Active Substance: PREDNISONE
     Indication: Renal transplant
     Dosage: 10 MG, QD
     Route: 065
  6. MYCOPHENOLIC ACID [Suspect]
     Active Substance: MYCOPHENOLIC ACID
     Indication: Renal transplant
     Dosage: 2 G, QD
     Route: 065
  7. POSACONAZOLE [Interacting]
     Active Substance: POSACONAZOLE
     Indication: Phaeohyphomycosis
     Dosage: 800 MG, QD
     Route: 065
  8. ITRACONAZOLE [Suspect]
     Active Substance: ITRACONAZOLE
     Indication: Phaeohyphomycosis
     Dosage: 400 MG, QD
     Route: 065
  9. ITRACONAZOLE [Suspect]
     Active Substance: ITRACONAZOLE
     Dosage: 300 MG, QD
     Route: 065
  10. ITRACONAZOLE [Suspect]
     Active Substance: ITRACONAZOLE
     Dosage: 300 MG, QD (LATER, INCREASED TO 400MG DAILY)LATER, INCREASED TO 400MG DAILY)
     Route: 065
  11. AMOXICILLIN\CLAVULANIC ACID [Concomitant]
     Active Substance: AMOXICILLIN\CLAVULANIC ACID
     Indication: Phaeohyphomycosis
     Route: 065

REACTIONS (11)
  - Phaeohyphomycosis [Recovered/Resolved]
  - Joint swelling [Recovered/Resolved]
  - Purulence [Recovered/Resolved]
  - Arthralgia [Recovered/Resolved]
  - Abscess [Recovering/Resolving]
  - Immunosuppressant drug level increased [Recovered/Resolved]
  - Labelled drug-drug interaction medication error [Recovered/Resolved]
  - Pain [Recovering/Resolving]
  - Purulent discharge [Recovered/Resolved]
  - Condition aggravated [Recovering/Resolving]
  - Drug interaction [Recovered/Resolved]
